FAERS Safety Report 10200759 (Version 1)
Quarter: 2014Q2

REPORT INFORMATION
  Report Type: Spontaneous
  Country: US (occurrence: US)
  Receive Date: 20140528
  Receipt Date: 20140528
  Transmission Date: 20141212
  Serious: Yes (Other)
  Sender: FDA-Public Use
  Company Number: US-ROCHE-1403296

PATIENT
  Age: 76 Year
  Sex: Female

DRUGS (1)
  1. GAZYVA [Suspect]
     Indication: PRODUCT USED FOR UNKNOWN INDICATION
     Dosage: EVERY HOUR FOR 4 HOURS, 100 MG TOTAL
     Route: 065

REACTIONS (3)
  - Atrial fibrillation [Unknown]
  - Hepatic enzyme increased [Unknown]
  - Cardiac flutter [Unknown]
